FAERS Safety Report 25170469 (Version 1)
Quarter: 2025Q2

REPORT INFORMATION
  Report Type: Spontaneous
  Country: CN (occurrence: CN)
  Receive Date: 20250408
  Receipt Date: 20250408
  Transmission Date: 20250716
  Serious: Yes (Disabling, Other)
  Sender: NOVO NORDISK
  Company Number: CN-NOVOPROD-1400733

PATIENT
  Sex: Male
  Weight: 80 kg

DRUGS (4)
  1. NOVOLIN R [Suspect]
     Active Substance: INSULIN HUMAN
     Dosage: 34 IU, QD (16 UNITS IN THE MORNING AND 18 UNITS IN THE EVENING)
     Dates: start: 201705
  2. NOVOLIN R [Suspect]
     Active Substance: INSULIN HUMAN
     Indication: Type 2 diabetes mellitus
     Dosage: 45 IU, QD (22 UNITS IN THE MORNING AND 23 UNITS IN THE EVENING)
     Dates: start: 2005
  3. DAPAGLIFLOZIN [Concomitant]
     Active Substance: DAPAGLIFLOZIN
  4. GLIMEPIRIDE [Concomitant]
     Active Substance: GLIMEPIRIDE

REACTIONS (3)
  - Injury [Unknown]
  - Spinal cord injury cervical [Unknown]
  - Paraplegia [Unknown]

NARRATIVE: CASE EVENT DATE: 20170401
